FAERS Safety Report 17606956 (Version 1)
Quarter: 2020Q1

REPORT INFORMATION
  Report Type: Spontaneous
  Country: US (occurrence: US)
  Receive Date: 20200331
  Receipt Date: 20200331
  Transmission Date: 20200409
  Serious: No
  Sender: FDA-Public Use
  Company Number: US-MATRIXX INITIATIVES, INC.-2082159

PATIENT
  Age: 55 Year
  Sex: Female
  Weight: 77.27 kg

DRUGS (4)
  1. UNSPECIFIED OTC DECONGESTANT [Concomitant]
  2. ZICAM ALLERGY RELIEF [Suspect]
     Active Substance: HOMEOPATHICS
     Indication: NASAL CONGESTION
     Route: 045
     Dates: start: 20200328, end: 20200329
  3. AMLODIPINE [Concomitant]
     Active Substance: AMLODIPINE BESYLATE
  4. LORATADINE. [Concomitant]
     Active Substance: LORATADINE

REACTIONS (2)
  - Anosmia [None]
  - Dysgeusia [None]
